FAERS Safety Report 4451717-4 (Version None)
Quarter: 2004Q3

REPORT INFORMATION
  Report Type: 
  Country: None (occurrence: None)
  Receive Date: 20040915
  Receipt Date: 20040909
  Transmission Date: 20050211
  Serious: Yes (Other)
  Sender: FDA-Public Use
  Company Number: 2004232437BR

PATIENT
  Sex: Female

DRUGS (1)
  1. DEPO-PROVERA [Suspect]
     Dosage: 150 MG

REACTIONS (4)
  - AMENORRHOEA [None]
  - BLOOD PRESSURE INCREASED [None]
  - GENERALISED OEDEMA [None]
  - WEIGHT INCREASED [None]
